FAERS Safety Report 20219531 (Version 2)
Quarter: 2021Q4

REPORT INFORMATION
  Report Type: Report from Study
  Country: CN (occurrence: CN)
  Receive Date: 20211222
  Receipt Date: 20211230
  Transmission Date: 20220303
  Serious: Yes (Hospitalization)
  Sender: FDA-Public Use
  Company Number: CN-JNJFOC-20211232816

PATIENT
  Age: 64 Year
  Sex: Female
  Weight: 57 kg

DRUGS (2)
  1. AMIVANTAMAB [Suspect]
     Active Substance: AMIVANTAMAB
     Indication: Non-small cell lung cancer
     Dosage: MOST RECENT DOSE: 26-NOV-2021
     Route: 042
     Dates: start: 20210902
  2. FELODIPINE [Concomitant]
     Active Substance: FELODIPINE
     Indication: Hypertension
     Route: 048
     Dates: start: 2020

REACTIONS (2)
  - Skin infection [Recovered/Resolved]
  - Rash [Recovered/Resolved]

NARRATIVE: CASE EVENT DATE: 20211213
